FAERS Safety Report 8830112 (Version 1)
Quarter: 2012Q4

REPORT INFORMATION
  Report Type: Spontaneous
  Country: GB (occurrence: None)
  Receive Date: 20121004
  Receipt Date: 20121004
  Transmission Date: 20130627
  Serious: Yes (Hospitalization)
  Sender: FDA-Public Use
  Company Number: 2012AP003135

PATIENT
  Age: 58 Year
  Sex: Male

DRUGS (8)
  1. SERTRALINE (SERTRALINE) (SERTRALINE) [Suspect]
     Indication: DEPRESSION
     Route: 048
     Dates: start: 20120821
  2. SERTRALINE (SERTRALINE) (SERTRALINE) [Suspect]
     Indication: DEPRESSION
     Route: 048
     Dates: start: 20120830, end: 20120903
  3. SERTRALINE (SERTRALINE) (SERTRALINE) [Suspect]
     Indication: DEPRESSION
  4. LORAZEPAM [Concomitant]
  5. PARACETAMOL [Concomitant]
  6. PROMETHAZINE [Concomitant]
  7. TRAZODONE [Concomitant]
  8. ZOPICLONE [Concomitant]

REACTIONS (6)
  - Anxiety [None]
  - Agitation [None]
  - Sleep disorder [None]
  - Suicidal ideation [None]
  - Self-injurious ideation [None]
  - Condition aggravated [None]
